FAERS Safety Report 21338114 (Version 7)
Quarter: 2023Q1

REPORT INFORMATION
  Report Type: Spontaneous
  Country: US (occurrence: US)
  Receive Date: 20220915
  Receipt Date: 20230208
  Transmission Date: 20230418
  Serious: No
  Sender: FDA-Public Use
  Company Number: US-PFIZER INC-PV202200063890

PATIENT
  Age: 61 Year
  Sex: Female

DRUGS (3)
  1. IBRANCE [Interacting]
     Active Substance: PALBOCICLIB
     Dosage: 125 MG, CYCLIC
     Dates: start: 20220815
  2. IBRANCE [Interacting]
     Active Substance: PALBOCICLIB
     Dosage: UNK
     Dates: start: 20220912
  3. MODAFINIL [Interacting]
     Active Substance: MODAFINIL
     Dosage: UNK

REACTIONS (9)
  - Drug interaction [Unknown]
  - Rash pruritic [Recovering/Resolving]
  - Dizziness [Recovered/Resolved]
  - White blood cell count decreased [Unknown]
  - Constipation [Unknown]
  - Hot flush [Unknown]
  - Decreased appetite [Recovered/Resolved]
  - Fatigue [Recovered/Resolved]
  - Nausea [Unknown]

NARRATIVE: CASE EVENT DATE: 20220101
